FAERS Safety Report 9529118 (Version 1)
Quarter: 2013Q3

REPORT INFORMATION
  Report Type: Not Available
  Country: US (occurrence: US)
  Receive Date: 20130916
  Receipt Date: 20130916
  Transmission Date: 20140515
  Serious: Yes (Other)
  Sender: FDA-Public Use
  Company Number: US-LUNDBECK-DKLU1086783

PATIENT
  Age: 26 Year
  Sex: Female

DRUGS (2)
  1. ONFI [Suspect]
     Indication: EPILEPSY
  2. KLONOPIN [Suspect]
     Indication: EPILEPSY

REACTIONS (1)
  - Convulsion [Unknown]
